FAERS Safety Report 10649750 (Version 2)
Quarter: 2015Q1

REPORT INFORMATION
  Report Type: Spontaneous
  Country: US (occurrence: US)
  Receive Date: 20141212
  Receipt Date: 20150320
  Transmission Date: 20150720
  Serious: Yes (Life-Threatening, Hospitalization)
  Sender: FDA-Public Use
  Company Number: US-BAYER-2014-183198

PATIENT
  Age: 20 Year
  Sex: Female
  Weight: 81.63 kg

DRUGS (1)
  1. MIRENA [Suspect]
     Active Substance: LEVONORGESTREL
     Indication: CONTRACEPTION
     Dosage: 20 MCG/24HR, CONT
     Route: 015
     Dates: start: 20121011, end: 20130304

REACTIONS (8)
  - General physical health deterioration [None]
  - Infection [None]
  - Device issue [None]
  - Abdominal pain [None]
  - Uterine perforation [None]
  - Scar [None]
  - Pelvic pain [None]
  - Dyspareunia [None]

NARRATIVE: CASE EVENT DATE: 201301
